FAERS Safety Report 8709341 (Version 3)
Quarter: 2013Q2

REPORT INFORMATION
  Report Type: Report from Study
  Country: JP (occurrence: JP)
  Receive Date: 20120806
  Receipt Date: 20130429
  Transmission Date: 20140414
  Serious: Yes (Hospitalization)
  Sender: FDA-Public Use
  Company Number: JP-VERTEX PHARMACEUTICALS INC.-AE-2012-009037

PATIENT
  Age: 67 Year
  Sex: Male

DRUGS (20)
  1. VX-950 (TELAPREVIR) [Suspect]
     Indication: CHRONIC HEPATITIS C
     Dosage: 2250 MG, QD
     Route: 048
     Dates: start: 20120411, end: 20120509
  2. VX-950 (TELAPREVIR) [Suspect]
     Dosage: 1500 MG, QD
     Route: 048
     Dates: start: 20120510, end: 20120530
  3. VX-950 (TELAPREVIR) [Suspect]
     Dosage: 750 MG, QD
     Route: 048
     Dates: start: 20120531, end: 20120615
  4. RIBAVIRIN [Suspect]
     Indication: CHRONIC HEPATITIS C
     Dosage: 800 MG, QD
     Route: 048
     Dates: start: 20120411, end: 20120424
  5. RIBAVIRIN [Suspect]
     Dosage: 400 MG, QD
     Route: 048
     Dates: start: 20120425, end: 20120501
  6. RIBAVIRIN [Suspect]
     Dosage: 200 MG, QD
     Route: 048
     Dates: start: 20120502, end: 20120509
  7. RIBAVIRIN [Suspect]
     Dosage: 200 MG/2DAYS
     Route: 048
     Dates: start: 20120510, end: 20120912
  8. RIBAVIRIN [Suspect]
     Dosage: 400 MG, QD
     Route: 048
     Dates: start: 20120913, end: 20120926
  9. PEGINTERFERON ALFA-2B [Suspect]
     Indication: CHRONIC HEPATITIS C
     Dosage: 1.5 ?G/KG, WEEKLY
     Route: 058
     Dates: start: 20120411, end: 20120919
  10. AMOBAN [Concomitant]
     Dosage: 7.5 MG, QD
     Route: 048
  11. DIOVAN [Concomitant]
     Dosage: 40 MG, QD
     Route: 048
  12. EPADEL [Concomitant]
     Dosage: 1800 MG, QD
     Route: 048
     Dates: start: 20120411
  13. NAUZELIN [Concomitant]
     Dosage: 30 MG, QD
     Route: 048
     Dates: start: 20120425
  14. ACINON [Concomitant]
     Dosage: 150 MG, QD
     Route: 048
     Dates: start: 20120426
  15. LOXONIN [Concomitant]
     Dosage: 60 MG, QD
     Route: 048
  16. LOXONIN [Concomitant]
     Dosage: 60 MG, PRN
     Route: 048
  17. MUCOSTA [Concomitant]
     Dosage: 200 MG, QD
     Route: 048
     Dates: start: 20120614, end: 20120703
  18. MUCOSTA [Concomitant]
     Dosage: 100 MG, PRN
     Route: 048
     Dates: start: 20120810, end: 20120812
  19. ADALAT CR [Concomitant]
     Dosage: 1 DF, QD
     Route: 048
     Dates: start: 20120802
  20. BIOFERMIN R [Concomitant]
     Dosage: 3 DF, QD
     Route: 048
     Dates: start: 20120810, end: 20120812

REACTIONS (2)
  - Seborrhoeic dermatitis [Recovered/Resolved]
  - Haemorrhoids [Recovered/Resolved]
